FAERS Safety Report 24574705 (Version 1)
Quarter: 2024Q4

REPORT INFORMATION
  Report Type: Spontaneous
  Country: IT (occurrence: IT)
  Receive Date: 20241104
  Receipt Date: 20241104
  Transmission Date: 20250114
  Serious: Yes (Hospitalization)
  Sender: CATALYST PHARMA
  Company Number: IT-CATALYSTPHARMACEUTICALPARTNERS-IT-CATA-24-01260

PATIENT
  Age: 49 Year
  Sex: Female

DRUGS (5)
  1. PERAMPANEL [Suspect]
     Active Substance: PERAMPANEL
     Indication: Partial seizures
     Dosage: 12 MILLIGRAM(S), 1 IN 1 DAY
     Route: 048
  2. PERAMPANEL [Suspect]
     Active Substance: PERAMPANEL
     Dosage: 8 MILLIGRAM(S), 1 IN 1 DAY
     Route: 048
  3. LEVETIRACETAM [Suspect]
     Active Substance: LEVETIRACETAM
     Indication: Partial seizures
     Dosage: 2000 MILLIGRAM(S), 1 IN 1 DAY)
     Route: 065
  4. DEXAMETHASONE [Suspect]
     Active Substance: DEXAMETHASONE
     Indication: Product used for unknown indication
     Dosage: 4 MILLIGRAM(S), 1 IN 1 DAY
     Route: 065
  5. DIAZEPAM [Concomitant]
     Active Substance: DIAZEPAM
     Indication: Partial seizures
     Dosage: 10 MILLIGRAM(S), 1 IN 1 DAY
     Route: 042

REACTIONS (2)
  - Psychomotor hyperactivity [Recovered/Resolved]
  - Suicidal ideation [Recovered/Resolved]
